FAERS Safety Report 18835319 (Version 1)
Quarter: 2021Q1

REPORT INFORMATION
  Report Type: Spontaneous
  Country: AU (occurrence: AU)
  Receive Date: 20210203
  Receipt Date: 20210203
  Transmission Date: 20210419
  Serious: Yes (Other)
  Sender: FDA-Public Use
  Company Number: AU-PFIZER INC-K200501384

PATIENT
  Age: 77 Year
  Sex: Female

DRUGS (18)
  1. HARTMANN^S SOLUTION [Concomitant]
     Active Substance: CALCIUM CHLORIDE\POTASSIUM CHLORIDE\SODIUM CHLORIDE\SODIUM LACTATE
     Dosage: 500 ML
  2. GELOFUSINE [SUCCINYLATED GELATIN] [Concomitant]
     Active Substance: SUCCINYLATED GELATIN
     Dosage: 1 L, UNK
  3. DICLOFENAC [Concomitant]
     Active Substance: DICLOFENAC
     Indication: ANALGESIC THERAPY
     Dosage: UNK
     Route: 054
  4. PARACETAMOL [Concomitant]
     Active Substance: ACETAMINOPHEN
     Indication: ANALGESIC THERAPY
     Dosage: UNK
     Route: 054
  5. HYDROCORTISONE. [Concomitant]
     Active Substance: HYDROCORTISONE
     Dosage: 100 MG, UNK
     Route: 042
  6. ADRENALIN [Suspect]
     Active Substance: EPINEPHRINE
     Dosage: 0.03?0.05 MCG/KG/MIN
     Route: 042
  7. PROPOFOL. [Concomitant]
     Active Substance: PROPOFOL
     Indication: ANALGESIC THERAPY
     Dosage: 70 MG
  8. CEPHALOTHIN SODIUM [Concomitant]
     Active Substance: CEPHALOTHIN SODIUM
     Dosage: 1 G
  9. METARAMINOL [Concomitant]
     Active Substance: METARAMINOL
     Indication: BLOOD PRESSURE MEASUREMENT
     Dosage: 0.5 MG
     Route: 042
  10. ADRENALIN [Suspect]
     Active Substance: EPINEPHRINE
     Dosage: 50 UG, SINGLE
     Route: 042
  11. MIDAZOLAM. [Concomitant]
     Active Substance: MIDAZOLAM
     Indication: ANALGESIC THERAPY
     Dosage: 1 MG
  12. ISOFLURANE. [Concomitant]
     Active Substance: ISOFLURANE
     Indication: ANALGESIC THERAPY
     Dosage: UNK
  13. POVIDONE?IODINE. [Concomitant]
     Active Substance: POVIDONE-IODINE
     Indication: WOUND TREATMENT
     Dosage: UNK
  14. PROMETHAZINE [Concomitant]
     Active Substance: PROMETHAZINE HYDROCHLORIDE
     Dosage: 25 MG, UNK
  15. HARTMANN^S SOLUTION [Concomitant]
     Active Substance: CALCIUM CHLORIDE\POTASSIUM CHLORIDE\SODIUM CHLORIDE\SODIUM LACTATE
     Dosage: 1 L
  16. ADRENALIN [Suspect]
     Active Substance: EPINEPHRINE
     Indication: ANAPHYLAXIS TREATMENT
     Dosage: 50 UG, SINGLE
     Route: 042
  17. FENTANYL. [Concomitant]
     Active Substance: FENTANYL
     Indication: ANALGESIC THERAPY
     Dosage: 25 UG
  18. MORPHINE [Concomitant]
     Active Substance: MORPHINE
     Dosage: 3 MG

REACTIONS (1)
  - Atrial fibrillation [Recovered/Resolved]
